FAERS Safety Report 9324148 (Version 3)
Quarter: 2013Q3

REPORT INFORMATION
  Report Type: Report from Study
  Country: BE (occurrence: BE)
  Receive Date: 20130603
  Receipt Date: 20130905
  Transmission Date: 20140515
  Serious: Yes (Hospitalization)
  Sender: FDA-Public Use
  Company Number: BE-ASTRAZENECA-2013SE36173

PATIENT
  Age: 29279 Day
  Sex: Male

DRUGS (11)
  1. STUDY PROCEDURE [Suspect]
     Indication: CORONARY ARTERY DISEASE
     Route: 065
  2. AZD6140 [Suspect]
     Indication: CORONARY ARTERY DISEASE
     Route: 048
     Dates: start: 20111125, end: 20120223
  3. AZD6140 [Suspect]
     Indication: CORONARY ARTERY DISEASE
     Route: 048
     Dates: start: 20120227, end: 20120310
  4. AZD6140 [Suspect]
     Indication: CORONARY ARTERY DISEASE
     Route: 048
     Dates: start: 20120312, end: 20120404
  5. AZD6140 [Suspect]
     Indication: CORONARY ARTERY DISEASE
     Route: 048
     Dates: start: 20120416, end: 20130413
  6. EMCONCOR MINOR [Concomitant]
     Indication: OXYGEN CONSUMPTION
     Route: 048
     Dates: start: 20120327
  7. ATORVASTATINE [Concomitant]
     Indication: HYPERCHOLESTEROLAEMIA
     Route: 048
  8. MOLSIDOMINE [Concomitant]
     Indication: ANGINA PECTORIS
     Route: 048
  9. CETISANDOZ [Concomitant]
     Indication: ANTIALLERGIC THERAPY
     Route: 048
     Dates: start: 20121107
  10. SERENASE [Concomitant]
     Indication: INSOMNIA
     Route: 048
     Dates: start: 20121107
  11. ASA [Concomitant]
     Route: 048

REACTIONS (2)
  - Respiratory tract infection viral [Recovered/Resolved]
  - Angina pectoris [Recovered/Resolved]
